FAERS Safety Report 17756823 (Version 1)
Quarter: 2020Q2

REPORT INFORMATION
  Report Type: Spontaneous
  Country: GB (occurrence: GB)
  Receive Date: 20200507
  Receipt Date: 20200507
  Transmission Date: 20200714
  Serious: Yes (Other)
  Sender: FDA-Public Use
  Company Number: GB-PFIZER INC-2020178479

PATIENT
  Age: 29 Year
  Sex: Female

DRUGS (2)
  1. DOXYCYCLINE MONOHYDRATE [Suspect]
     Active Substance: DOXYCYCLINE
     Indication: EAR INFECTION
     Dosage: 100 MG
     Route: 048
     Dates: start: 20200404
  2. DOXYCYCLINE MONOHYDRATE [Suspect]
     Active Substance: DOXYCYCLINE
     Indication: EAR INFECTION
     Dosage: 200MG ON FIRST DAY THEN 100MG A DAY AFTER.
     Route: 048
     Dates: start: 20200403, end: 20200403

REACTIONS (1)
  - Dyspepsia [Unknown]

NARRATIVE: CASE EVENT DATE: 20200403
